FAERS Safety Report 23626768 (Version 2)
Quarter: 2024Q1

REPORT INFORMATION
  Report Type: Spontaneous
  Country: US (occurrence: US)
  Receive Date: 20240313
  Receipt Date: 20240329
  Transmission Date: 20240410
  Serious: Yes (Other)
  Sender: FDA-Public Use
  Company Number: US-BRISTOL-MYERS SQUIBB COMPANY-2024-038814

PATIENT
  Age: 82 Year
  Sex: Male

DRUGS (24)
  1. LENALIDOMIDE [Suspect]
     Active Substance: LENALIDOMIDE
     Indication: Plasma cell myeloma
     Dosage: TAKE 1 CAPSULE BY MOUTH DAILY FOR 21 DAYS FOLLOWED BY 7 DAYS OFF
     Route: 048
  2. DARATUMUMAB [Suspect]
     Active Substance: DARATUMUMAB
     Indication: Product used for unknown indication
     Dates: start: 202401
  3. DEXAMETHASONE [Concomitant]
     Active Substance: DEXAMETHASONE
     Indication: Product used for unknown indication
  4. NORVASC [Concomitant]
     Active Substance: AMLODIPINE BESYLATE
     Indication: Product used for unknown indication
     Route: 048
  5. ECOTRIN [Concomitant]
     Active Substance: ASPIRIN
     Indication: Product used for unknown indication
     Route: 048
  6. CYANOCOBALAMIN [Concomitant]
     Active Substance: CYANOCOBALAMIN
     Indication: Product used for unknown indication
     Route: 048
  7. VITAMIN B12 [Concomitant]
     Active Substance: CYANOCOBALAMIN
     Indication: Product used for unknown indication
     Route: 048
  8. DDAVP [Concomitant]
     Active Substance: DESMOPRESSIN ACETATE
     Indication: Product used for unknown indication
     Route: 045
  9. DDAVP [Concomitant]
     Active Substance: DESMOPRESSIN ACETATE
     Route: 048
  10. ZETIA [Concomitant]
     Active Substance: EZETIMIBE
     Indication: Product used for unknown indication
     Route: 048
  11. PEPCID [Concomitant]
     Active Substance: FAMOTIDINE
     Indication: Product used for unknown indication
     Route: 048
  12. SYNTHROID [Concomitant]
     Active Substance: LEVOTHYROXINE SODIUM
     Indication: Product used for unknown indication
     Route: 048
  13. TOPROL XL [Concomitant]
     Active Substance: METOPROLOL SUCCINATE
     Indication: Product used for unknown indication
     Route: 048
  14. VITAMIN B COMPLEX [Concomitant]
     Active Substance: CYANOCOBALAMIN\DEXPANTHENOL\NIACINAMIDE\PYRIDOXINE HYDROCHLORIDE\RIBOFLAVIN 5^-PHOSPHATE SODIUM\THIA
     Indication: Product used for unknown indication
     Route: 048
  15. FLOMAX [Concomitant]
     Active Substance: TAMSULOSIN HYDROCHLORIDE
     Indication: Product used for unknown indication
     Route: 048
  16. PRILOSEC [Concomitant]
     Active Substance: OMEPRAZOLE MAGNESIUM
     Indication: Product used for unknown indication
     Route: 048
  17. CINNAMON\HERBALS [Concomitant]
     Active Substance: CINNAMON\HERBALS
     Indication: Product used for unknown indication
     Route: 048
  18. VITAMIN D3 [Concomitant]
     Active Substance: CHOLECALCIFEROL
     Indication: Product used for unknown indication
     Route: 048
  19. ASTELIN [Concomitant]
     Active Substance: AZELASTINE HYDROCHLORIDE
     Indication: Product used for unknown indication
     Route: 045
  20. MULTIVITAMINS WITH MINERALS [UMBRELLA TERM] [Concomitant]
     Indication: Product used for unknown indication
     Dosage: DAILY 1
     Route: 048
  21. OZEMPIC [Concomitant]
     Active Substance: SEMAGLUTIDE
     Indication: Product used for unknown indication
     Dosage: DAILY 1
     Route: 058
  22. LANTUS SOLOSTAR [Concomitant]
     Active Substance: INSULIN GLARGINE
     Indication: Product used for unknown indication
     Dosage: U-100 INSULIN 100 UNIT/ML INJECT 40 UNITS
     Route: 058
  23. CHONDROITIN SULFATE (BOVINE)\GLUCOSAMINE HYDROCHLORIDE [Concomitant]
     Active Substance: CHONDROITIN SULFATE (BOVINE)\GLUCOSAMINE HYDROCHLORIDE
     Indication: Product used for unknown indication
     Dosage: DAILY 1
     Route: 048
  24. HYDROCORTISONE [Concomitant]
     Active Substance: HYDROCORTISONE
     Indication: Product used for unknown indication
     Route: 061

REACTIONS (6)
  - Nausea [Not Recovered/Not Resolved]
  - Single functional kidney [Not Recovered/Not Resolved]
  - Hypercalcaemia [Unknown]
  - Renal impairment [Unknown]
  - Anaemia [Unknown]
  - Product supply issue [Unknown]
